FAERS Safety Report 19611011 (Version 2)
Quarter: 2021Q3

REPORT INFORMATION
  Report Type: Report from Study
  Country: US (occurrence: US)
  Receive Date: 20210726
  Receipt Date: 20210730
  Transmission Date: 20211014
  Serious: Yes (Hospitalization, Other)
  Sender: FDA-Public Use
  Company Number: US-OTSUKA-2021_004626

PATIENT
  Age: 72 Year
  Sex: Female

DRUGS (4)
  1. TOLVAPTAN [Suspect]
     Active Substance: TOLVAPTAN
     Dosage: 90 MG, QD (UPON WAKING)
     Route: 048
     Dates: end: 202103
  2. TOLVAPTAN [Suspect]
     Active Substance: TOLVAPTAN
     Indication: CONGENITAL CYSTIC KIDNEY DISEASE
     Dosage: 90 MG, QD (UPON WAKING)
     Route: 048
     Dates: end: 202101
  3. TOLVAPTAN [Suspect]
     Active Substance: TOLVAPTAN
     Dosage: 30 MG, QD (8 HOUR LATER)
     Route: 048
     Dates: end: 202101
  4. TOLVAPTAN [Suspect]
     Active Substance: TOLVAPTAN
     Dosage: 30 MG, QD (8 HOUR LATER)
     Route: 048
     Dates: end: 202103

REACTIONS (4)
  - Polydipsia [Unknown]
  - Foot fracture [Not Recovered/Not Resolved]
  - Shoulder operation [Unknown]
  - Pollakiuria [Not Recovered/Not Resolved]

NARRATIVE: CASE EVENT DATE: 20210303
